FAERS Safety Report 10700656 (Version 1)
Quarter: 2014Q4

REPORT INFORMATION
  Report Type: Spontaneous
  Country: US (occurrence: None)
  Receive Date: 20141224
  Receipt Date: 20141224
  Transmission Date: 20150529
  Serious: Yes (Disabling)
  Sender: FDA-Public Use
  Company Number: PHEH2014US000542

PATIENT
  Age: 57 Year
  Sex: Female
  Weight: 64.1 kg

DRUGS (4)
  1. LETROZOLE. [Suspect]
     Active Substance: LETROZOLE
     Indication: BREAST CANCER
  2. ANASTROZOLE. [Suspect]
     Active Substance: ANASTROZOLE
     Indication: BREAST CANCER
     Route: 048
  3. FEMARA [Concomitant]
     Active Substance: LETROZOLE
  4. ALBUTEROL (SALBUTAMOL) [Concomitant]
     Active Substance: ALBUTEROL

REACTIONS (2)
  - Pain [None]
  - Myalgia [None]
